FAERS Safety Report 7568499-X (Version None)
Quarter: 2011Q2

REPORT INFORMATION
  Report Type: 
  Country: None (occurrence: None)
  Receive Date: 20110623
  Receipt Date: 20110615
  Transmission Date: 20111010
  Serious: Yes (Hospitalization)
  Sender: FDA-Public Use
  Company Number: US-JNJFOC-20110608439

PATIENT
  Age: 60 Year
  Sex: Female

DRUGS (2)
  1. INVEGA SUSTENNA [Suspect]
     Indication: PRODUCT USED FOR UNKNOWN INDICATION
     Route: 030
     Dates: start: 20110101
  2. INVEGA SUSTENNA [Suspect]
     Route: 030
     Dates: end: 20110101

REACTIONS (2)
  - PSYCHOTIC DISORDER [None]
  - PRODUCT QUALITY ISSUE [None]
